FAERS Safety Report 5085283-X (Version None)
Quarter: 2006Q3

REPORT INFORMATION
  Report Type: 
  Country: None (occurrence: None)
  Receive Date: 20060817
  Receipt Date: 20060807
  Transmission Date: 20061208
  Serious: Yes (Other)
  Sender: FDA-Public Use
  Company Number: 2006013777

PATIENT
  Age: 71 Year
  Sex: Female
  Weight: 77.1115 kg

DRUGS (7)
  1. QUINAPRIL HCL [Suspect]
     Indication: HYPERTENSION
     Dosage: 20 MG (20 MG, QD), ORAL  ; 40 MG, ORAL
     Route: 048
  2. TROVAN [Suspect]
     Indication: ILL-DEFINED DISORDER
  3. HYDROCHLOROTHIAZIDE [Concomitant]
  4. VITAMINS [Concomitant]
  5. ESTRACE [Concomitant]
  6. FLAXSEED OIL (LINSEED OIL) [Concomitant]
  7. GLUCOSAMINE W/CHONDROITIN SULFATES (ASCORBIC ACID, CHONDROITIN SULFATE [Concomitant]

REACTIONS (6)
  - COUGH [None]
  - DRUG EFFECT DECREASED [None]
  - DRUG HYPERSENSITIVITY [None]
  - DRUG INEFFECTIVE [None]
  - PLATELET COUNT INCREASED [None]
  - RASH [None]
